FAERS Safety Report 13681826 (Version 13)
Quarter: 2022Q2

REPORT INFORMATION
  Report Type: Report from Study
  Country: CN (occurrence: None)
  Receive Date: 20170623
  Receipt Date: 20220425
  Transmission Date: 20220721
  Serious: Yes (Hospitalization)
  Sender: FDA-Public Use
  Company Number: CN-ROCHE-1954213

PATIENT
  Age: 68 Year
  Sex: Male
  Weight: 82 kg

DRUGS (50)
  1. ATEZOLIZUMAB [Suspect]
     Active Substance: ATEZOLIZUMAB
     Indication: Non-small cell lung cancer
     Dosage: 12/OCT/2017, MOST RECENT DOSE OF ATEZOLIZUMAB PRIOR TO SAE ONSET
     Route: 042
     Dates: start: 20160805
  2. CREATINE [Concomitant]
     Active Substance: CREATINE
     Dosage: HEART PROTECTION
     Dates: start: 20170622, end: 20170622
  3. PHOSPHOLIPID [Concomitant]
     Active Substance: PHOSPHOLIPID
     Dosage: LIVER PROTECTION
     Dates: start: 20170621, end: 20170621
  4. PHOSPHOLIPID [Concomitant]
     Active Substance: PHOSPHOLIPID
     Dates: start: 20200417, end: 20200427
  5. PHOSPHOLIPID [Concomitant]
     Active Substance: PHOSPHOLIPID
     Dates: start: 20200509, end: 20200922
  6. DEXTROSE [Concomitant]
     Active Substance: DEXTROSE
     Dates: start: 20170621, end: 20170621
  7. POTASSIUM CHLORIDE [Concomitant]
     Active Substance: POTASSIUM CHLORIDE
     Dosage: NUTRITIONAL MYOCARDIUM
     Dates: start: 20170621, end: 20170621
  8. INSULIN HUMAN [Concomitant]
     Active Substance: INSULIN HUMAN
     Dosage: NUTRITIONAL MYOCARDIUM
     Dates: start: 20170621, end: 20170621
  9. FRUCTOSE DIPHOSPHATE SODIUM [Concomitant]
     Dosage: HEART PROTECTION
     Dates: start: 20170626, end: 20170703
  10. FRUCTOSE DIPHOSPHATE SODIUM [Concomitant]
     Dosage: HEART PROTECTION
     Dates: start: 20170718, end: 20170725
  11. TRIMETAZIDINE DIHYDROCHLORIDE [Concomitant]
     Active Substance: TRIMETAZIDINE DIHYDROCHLORIDE
     Dosage: HEART PROTECTION
     Dates: start: 20170626, end: 20170703
  12. TRIMETAZIDINE DIHYDROCHLORIDE [Concomitant]
     Active Substance: TRIMETAZIDINE DIHYDROCHLORIDE
     Dosage: HEART PROTECTION
     Dates: start: 20170718, end: 20170725
  13. SPIRONOLACTONE [Concomitant]
     Active Substance: SPIRONOLACTONE
     Indication: Pericardial effusion
     Dates: start: 20170810, end: 20170903
  14. SPIRONOLACTONE [Concomitant]
     Active Substance: SPIRONOLACTONE
     Indication: Polyuria
     Dates: start: 20170718, end: 20170723
  15. FUROSEMIDE [Concomitant]
     Active Substance: FUROSEMIDE
     Indication: Pericardial effusion
     Dates: start: 20170810, end: 20170903
  16. FUROSEMIDE [Concomitant]
     Active Substance: FUROSEMIDE
     Indication: Polyuria
     Dates: start: 20170718, end: 20170722
  17. COMPOUND METHOXYPHENAMINE [Concomitant]
     Indication: Cough
     Dates: start: 20170120, end: 20170126
  18. COMPOUND METHOXYPHENAMINE [Concomitant]
     Indication: Productive cough
  19. ACETYLCYSTEINE [Concomitant]
     Active Substance: ACETYLCYSTEINE
     Indication: Cough
     Route: 048
     Dates: start: 20170120, end: 20170126
  20. ACETYLCYSTEINE [Concomitant]
     Active Substance: ACETYLCYSTEINE
     Indication: Productive cough
  21. CELECOXIB [Concomitant]
     Active Substance: CELECOXIB
     Indication: Arthralgia
     Route: 048
     Dates: start: 20170208, end: 20170213
  22. CELECOXIB [Concomitant]
     Active Substance: CELECOXIB
     Indication: Ligament sprain
     Dates: start: 20190726, end: 20190804
  23. GLICLAZIDE [Concomitant]
     Active Substance: GLICLAZIDE
     Indication: Hyperglycaemia
     Dates: start: 20171226
  24. ACARBOSE [Concomitant]
     Active Substance: ACARBOSE
     Indication: Hyperglycaemia
     Dates: start: 20171226, end: 201803
  25. METFORMIN HYDROCHLORIDE [Concomitant]
     Active Substance: METFORMIN HYDROCHLORIDE
     Indication: Hyperglycaemia
     Dates: start: 20180125, end: 201803
  26. METFORMIN HYDROCHLORIDE [Concomitant]
     Active Substance: METFORMIN HYDROCHLORIDE
     Dates: start: 20180414, end: 20210901
  27. METFORMIN HYDROCHLORIDE [Concomitant]
     Active Substance: METFORMIN HYDROCHLORIDE
     Dates: start: 20190902, end: 20200614
  28. COMPOUND GLYCYRRHIZAE (UNK INGREDIENTS) [Concomitant]
     Indication: Cough
     Route: 048
     Dates: start: 20180131, end: 20180206
  29. SITAGLIPTIN PHOSPHATE [Concomitant]
     Active Substance: SITAGLIPTIN PHOSPHATE
     Indication: Hyperglycaemia
     Dates: start: 20210310, end: 20210628
  30. CEFPROZIL [Concomitant]
     Active Substance: CEFPROZIL
     Indication: Cough
     Dates: start: 20190106, end: 20190109
  31. CEFPROZIL [Concomitant]
     Active Substance: CEFPROZIL
     Indication: Gingival swelling
     Dates: start: 20210517, end: 20210520
  32. CEFPROZIL [Concomitant]
     Active Substance: CEFPROZIL
     Indication: Gingival pain
  33. ADEMETIONINE BUTANEDISULFONATE [Concomitant]
     Active Substance: ADEMETIONINE BUTANEDISULFONATE
     Dates: start: 20200417, end: 20200427
  34. ADEMETIONINE BUTANEDISULFONATE [Concomitant]
     Active Substance: ADEMETIONINE BUTANEDISULFONATE
     Dates: start: 20200509, end: 20200614
  35. OFLOXACIN [Concomitant]
     Active Substance: OFLOXACIN
     Indication: Conjunctivitis
     Dates: start: 20200615, end: 20200703
  36. GANCICLOVIR [Concomitant]
     Active Substance: GANCICLOVIR
     Indication: Conjunctivitis
     Route: 047
     Dates: start: 20200615, end: 20200703
  37. ROSIGLITAZONE [Concomitant]
     Active Substance: ROSIGLITAZONE
     Indication: Hyperglycaemia
     Dates: start: 20200124, end: 20200222
  38. GLICLAZIDE [Concomitant]
     Active Substance: GLICLAZIDE
     Indication: Hyperglycaemia
     Dates: start: 20191009, end: 20210917
  39. GLICLAZIDE [Concomitant]
     Active Substance: GLICLAZIDE
     Dates: start: 20171226, end: 20180124
  40. GLIPIZIDE [Concomitant]
     Active Substance: GLIPIZIDE
     Indication: Hyperglycaemia
     Dates: start: 20210918
  41. GLIPIZIDE [Concomitant]
     Active Substance: GLIPIZIDE
     Dates: start: 20210310, end: 20210628
  42. CEFUROXIME AXETIL [Concomitant]
     Active Substance: CEFUROXIME AXETIL
     Indication: Pharyngitis
     Dates: start: 20220202, end: 20220205
  43. CEFUROXIME AXETIL [Concomitant]
     Active Substance: CEFUROXIME AXETIL
     Dates: start: 20220130, end: 20220131
  44. LANQIN ORAL SOLUTION [Concomitant]
     Indication: Pharyngitis
     Dates: start: 20220130, end: 20220131
  45. LANQIN ORAL SOLUTION [Concomitant]
     Dates: start: 20220202, end: 20220202
  46. DAPAGLIFLOZIN [Concomitant]
     Active Substance: DAPAGLIFLOZIN
     Indication: Hyperglycaemia
     Dates: start: 20200615
  47. COMPOUND LIQUORICE [Concomitant]
     Indication: Pharyngitis
     Dates: start: 20220130, end: 20220131
  48. COMPOUND LIQUORICE [Concomitant]
     Dates: start: 20220201, end: 20220205
  49. METRONIDAZOLE [Concomitant]
     Active Substance: METRONIDAZOLE
     Indication: Gingival pain
     Dates: start: 20210517, end: 20210519
  50. METRONIDAZOLE [Concomitant]
     Active Substance: METRONIDAZOLE
     Indication: Gingival swelling

REACTIONS (2)
  - Blood creatine phosphokinase increased [Recovered/Resolved]
  - Hypothyroidism [Not Recovered/Not Resolved]

NARRATIVE: CASE EVENT DATE: 20170119
